FAERS Safety Report 6550230-8 (Version None)
Quarter: 2010Q1

REPORT INFORMATION
  Report Type: 
  Country: None (occurrence: None)
  Receive Date: 20100125
  Receipt Date: 20100121
  Transmission Date: 20100710
  Serious: Yes (Hospitalization, Other)
  Sender: FDA-Public Use
  Company Number: GXKR2010DE00978

PATIENT
  Age: 67 Year
  Sex: Male
  Weight: 78 kg

DRUGS (3)
  1. TRAMADOL (NGX) [Suspect]
     Dosage: UNK
     Route: 030
     Dates: start: 20091213, end: 20091213
  2. INFLUENZA VACCINE [Suspect]
     Indication: INFLUENZA IMMUNISATION
     Dosage: UNK
     Route: 030
     Dates: start: 20091126, end: 20091126
  3. TRAMAL [Suspect]
     Dosage: UNK
     Dates: start: 20091213, end: 20091213

REACTIONS (1)
  - THROMBOTIC THROMBOCYTOPENIC PURPURA [None]
